FAERS Safety Report 6198919-7 (Version None)
Quarter: 2009Q2

REPORT INFORMATION
  Report Type: 
  Country: None (occurrence: None)
  Receive Date: 20090522
  Receipt Date: 20090511
  Transmission Date: 20091009
  Serious: Yes (Hospitalization)
  Sender: FDA-Public Use
  Company Number: US-JNJFOC-20081002897

PATIENT
  Sex: Female
  Weight: 52.16 kg

DRUGS (3)
  1. TYLOX [Suspect]
     Indication: PAIN
     Dosage: 10/1000MG (2X 5/500MG), 1-2 EVERY 4-6 HOURS
     Route: 048
  2. TYLOX [Suspect]
     Indication: SCIATICA
     Route: 048
  3. SYNTHROID [Concomitant]
     Dosage: ^0.137^
     Route: 048

REACTIONS (9)
  - ABDOMINAL PAIN UPPER [None]
  - DRUG EFFECT DECREASED [None]
  - DRUG EXPOSURE DURING PREGNANCY [None]
  - DRUG INEFFECTIVE [None]
  - DYSPHAGIA [None]
  - PRODUCT QUALITY ISSUE [None]
  - PRODUCT TAMPERING [None]
  - THYROID CANCER [None]
  - WRONG TECHNIQUE IN DRUG USAGE PROCESS [None]
